FAERS Safety Report 22587870 (Version 1)
Quarter: 2023Q2

REPORT INFORMATION
  Report Type: Spontaneous
  Country: US (occurrence: US)
  Receive Date: 20230612
  Receipt Date: 20230612
  Transmission Date: 20230721
  Serious: No
  Sender: FDA-Public Use
  Company Number: US-GSK-US2023AMR078899

PATIENT
  Age: 80 Year
  Sex: Female

DRUGS (8)
  1. BREO ELLIPTA [Interacting]
     Active Substance: FLUTICASONE FUROATE\VILANTEROL TRIFENATATE
     Indication: Hypersensitivity
     Dosage: UNK
  2. DUPILUMAB [Interacting]
     Active Substance: DUPILUMAB
     Indication: Dermatitis atopic
     Dosage: 600 MG, QD
     Route: 058
     Dates: start: 20230315
  3. DUPILUMAB [Interacting]
     Active Substance: DUPILUMAB
     Dosage: 300 MG, Z, QOW(EVERY OTHER WEEK)
     Dates: start: 2023
  4. DUPILUMAB [Interacting]
     Active Substance: DUPILUMAB
     Indication: Eczema
     Dosage: UNK
  5. DUPILUMAB [Interacting]
     Active Substance: DUPILUMAB
     Indication: Knee arthroplasty
  6. MONTELUKAST SODIUM [Suspect]
     Active Substance: MONTELUKAST SODIUM
     Indication: Hypersensitivity
     Dosage: UNK
  7. SINGULAIR [Interacting]
     Active Substance: MONTELUKAST SODIUM
     Indication: Hypersensitivity
     Dosage: UNK
  8. EXEMESTANE [Concomitant]
     Active Substance: EXEMESTANE
     Indication: Neoplasm malignant
     Dosage: UNK

REACTIONS (8)
  - Stress [Unknown]
  - Eosinophil count decreased [Not Recovered/Not Resolved]
  - Drug interaction [Unknown]
  - Somnolence [Not Recovered/Not Resolved]
  - Rebound eczema [Not Recovered/Not Resolved]
  - Malaise [Not Recovered/Not Resolved]
  - Rash [Not Recovered/Not Resolved]
  - Product use in unapproved indication [Unknown]

NARRATIVE: CASE EVENT DATE: 20230301
